FAERS Safety Report 8824953 (Version 2)
Quarter: 2015Q2

REPORT INFORMATION
  Report Type: Report from Study
  Country: US (occurrence: US)
  Receive Date: 20121004
  Receipt Date: 20150417
  Transmission Date: 20150821
  Serious: Yes (Death)
  Sender: FDA-Public Use
  Company Number: US-ROCHE-1136995

PATIENT
  Sex: Male

DRUGS (15)
  1. FLUDARABINE [Concomitant]
     Active Substance: FLUDARABINE PHOSPHATE
     Dosage: TWO THROUGH FIVE
     Route: 065
  2. ADRIAMYCIN [Concomitant]
     Active Substance: DOXORUBICIN HYDROCHLORIDE
     Route: 065
  3. PEGFILGRASTIM [Concomitant]
     Active Substance: PEGFILGRASTIM
     Route: 065
  4. RITUXAN [Suspect]
     Active Substance: RITUXIMAB
     Indication: B-CELL LYMPHOMA
     Route: 042
     Dates: start: 20080528
  5. DIPHENHYDRAMINE [Concomitant]
     Active Substance: DIPHENHYDRAMINE
     Route: 048
  6. PREDNISONE. [Concomitant]
     Active Substance: PREDNISONE
     Route: 048
  7. CYCLOPHOSPHAMIDE. [Concomitant]
     Active Substance: CYCLOPHOSPHAMIDE
     Route: 065
  8. DECADRON [Concomitant]
     Active Substance: DEXAMETHASONE
     Route: 065
  9. TAGAMET [Concomitant]
     Active Substance: CIMETIDINE
     Route: 042
  10. VINCRISTINE [Concomitant]
     Active Substance: VINCRISTINE
     Route: 065
  11. ANZEMET [Concomitant]
     Active Substance: DOLASETRON MESYLATE
     Route: 065
  12. CYTOXAN [Concomitant]
     Active Substance: CYCLOPHOSPHAMIDE
     Route: 042
  13. TYLENOL [Concomitant]
     Active Substance: ACETAMINOPHEN
     Route: 048
  14. DEXAMETHASONE. [Concomitant]
     Active Substance: DEXAMETHASONE
     Route: 042
  15. BENADRYL [Concomitant]
     Active Substance: DIPHENHYDRAMINE HYDROCHLORIDE
     Route: 042

REACTIONS (8)
  - Erythema [Unknown]
  - Cellulitis [Unknown]
  - Death [Fatal]
  - Nephrolithiasis [Unknown]
  - Disease progression [Unknown]
  - Hydronephrosis [Unknown]
  - Feeling hot [Unknown]
  - Peripheral swelling [Unknown]
